FAERS Safety Report 7985809-X (Version None)
Quarter: 2011Q4

REPORT INFORMATION
  Report Type: 
  Country: None (occurrence: None)
  Receive Date: 20111216
  Receipt Date: 20111208
  Transmission Date: 20120403
  Serious: Yes (Hospitalization)
  Sender: FDA-Public Use
  Company Number: DE-B.I. PHARMACEUTICALS,INC./RIDGEFIELD-2011-DE-06451DE

PATIENT
  Age: 85 Year
  Sex: Female

DRUGS (5)
  1. PRADAXA [Suspect]
     Indication: ATRIAL FIBRILLATION
     Dosage: 150 MG
     Dates: start: 20110801
  2. PRADAXA [Suspect]
     Indication: CARDIAC VALVE DISEASE
  3. PRADAXA [Suspect]
     Indication: ARRHYTHMIA
  4. METHOTREXATE [Concomitant]
     Indication: POLYARTHRITIS
  5. CORTISONE ACETATE [Concomitant]
     Indication: POLYARTHRITIS

REACTIONS (6)
  - NAUSEA [None]
  - WEIGHT DECREASED [None]
  - DIZZINESS [None]
  - AGEUSIA [None]
  - EATING DISORDER [None]
  - DYSPNOEA [None]
